FAERS Safety Report 5447286-2 (Version None)
Quarter: 2007Q3

REPORT INFORMATION
  Report Type: 
  Country: None (occurrence: None)
  Receive Date: 20070910
  Receipt Date: 20070830
  Transmission Date: 20080115
  Serious: Yes (Other)
  Sender: FDA-Public Use
  Company Number: US-JNJFOC-20070900189

PATIENT
  Sex: Female
  Weight: 86.18 kg

DRUGS (11)
  1. DURAGESIC-100 [Suspect]
     Indication: PAIN
     Route: 062
  2. OXYCODONE HCL AND ACETAMINOPHEN [Concomitant]
     Indication: PAIN
     Dosage: 10/325, AS NEEDED
     Route: 065
  3. KLOR-CON [Concomitant]
     Indication: BLOOD POTASSIUM DECREASED
     Route: 048
  4. PREDNISONE [Concomitant]
     Indication: SYSTEMIC LUPUS ERYTHEMATOSUS
     Route: 048
  5. SOMA [Concomitant]
     Indication: FIBROMYALGIA
     Route: 048
  6. ACIPHEX [Concomitant]
     Route: 048
  7. CELLCEPT [Concomitant]
     Indication: SYSTEMIC LUPUS ERYTHEMATOSUS
     Route: 048
  8. ESTAZOLAM [Concomitant]
     Route: 048
  9. FUROSEMIDE [Concomitant]
     Indication: SWELLING
     Route: 048
  10. COUDAMIN [Concomitant]
     Indication: ANTICOAGULANT THERAPY
     Route: 048
  11. FLONASE [Concomitant]
     Indication: MULTIPLE ALLERGIES
     Route: 055

REACTIONS (5)
  - CHRONIC INFLAMMATORY DEMYELINATING POLYRADICULONEUROPATHY [None]
  - DRUG INEFFECTIVE [None]
  - NAUSEA [None]
  - OSTEOPOROSIS [None]
  - PHARMACEUTICAL PRODUCT COMPLAINT [None]
